FAERS Safety Report 16786342 (Version 5)
Quarter: 2020Q1

REPORT INFORMATION
  Report Type: Report from Study
  Country: US (occurrence: US)
  Receive Date: 20190909
  Receipt Date: 20200319
  Transmission Date: 20200409
  Serious: Yes (Hospitalization, Other)
  Sender: FDA-Public Use
  Company Number: US-MALLINCKRODT-T201905984

PATIENT
  Age: 83 Year
  Sex: Male
  Weight: 72 kg

DRUGS (6)
  1. OFEV [Suspect]
     Active Substance: NINTEDANIB
     Indication: PRODUCT USED FOR UNKNOWN INDICATION
     Dosage: UNK
     Route: 065
  2. REPOSITORY CORTICOTROPIN INJECTION [Suspect]
     Active Substance: CORTICOTROPIN
     Dosage: 80 UNITS, EVERY 72 HOURS
     Route: 058
     Dates: start: 2019
  3. PREDNISONE. [Concomitant]
     Active Substance: PREDNISONE
     Indication: PRODUCT USED FOR UNKNOWN INDICATION
     Dosage: UNK
     Route: 065
  4. REPOSITORY CORTICOTROPIN INJECTION [Suspect]
     Active Substance: CORTICOTROPIN
     Indication: HAEMATURIA
     Dosage: 40UNITS TWICE A WEEK FOR 4 WEEKS
     Route: 058
     Dates: start: 201908, end: 2019
  5. REPOSITORY CORTICOTROPIN INJECTION [Suspect]
     Active Substance: CORTICOTROPIN
     Dosage: UNK
     Route: 065
     Dates: start: 202001
  6. REPOSITORY CORTICOTROPIN INJECTION [Suspect]
     Active Substance: CORTICOTROPIN
     Dosage: UNK
     Route: 065
     Dates: start: 20200228

REACTIONS (6)
  - Pneumonia [Unknown]
  - Oxygen saturation decreased [Unknown]
  - Condition aggravated [Unknown]
  - Heart rate increased [Unknown]
  - Product dose omission [Recovered/Resolved]
  - Respiratory rate increased [Not Recovered/Not Resolved]

NARRATIVE: CASE EVENT DATE: 201908
